FAERS Safety Report 22030784 (Version 1)
Quarter: 2023Q1

REPORT INFORMATION
  Report Type: Spontaneous
  Country: US (occurrence: None)
  Receive Date: 20230221
  Receipt Date: 20230221
  Transmission Date: 20230418
  Serious: Yes (Hospitalization)
  Sender: FDA-Public Use
  Company Number: None

PATIENT
  Sex: Male

DRUGS (21)
  1. XOLAIR [Suspect]
     Active Substance: OMALIZUMAB
     Indication: Combined immunodeficiency
     Dosage: FREQUENCY : MONTHLY;?
     Route: 058
     Dates: start: 20190122
  2. ADVAIR DISKU AER [Concomitant]
  3. CALCIUM TAB + D [Concomitant]
  4. DEXILANT CAP DR [Concomitant]
  5. FLONASE SPR [Concomitant]
  6. FOSAMAX + D TAB [Concomitant]
  7. GAMUNEX-C SDV [Concomitant]
  8. GAMUNEX-C SDV [Concomitant]
  9. FLUCOS/CHOND CAP [Concomitant]
  10. LEVOTHYROXIN TAB [Concomitant]
  11. LIMBREL CAP [Concomitant]
  12. LOSARTAN POT TAB [Concomitant]
  13. MULTIVITS/FL CHW FE [Concomitant]
  14. PREGNENOLONE POW [Concomitant]
  15. SINGULAIR TAB [Concomitant]
  16. SKELAXIN TAB [Concomitant]
  17. TRIAMINCOLON CRE [Concomitant]
  18. VENOFER INJ [Concomitant]
  19. VITAMIN D CAP [Concomitant]
  20. WELLBUTRIN TAB XL [Concomitant]
  21. XOPENEX HFA AER [Concomitant]

REACTIONS (1)
  - Hospitalisation [None]
